FAERS Safety Report 19073142 (Version 1)
Quarter: 2021Q1

REPORT INFORMATION
  Report Type: Spontaneous
  Country: FR (occurrence: FR)
  Receive Date: 20210330
  Receipt Date: 20210330
  Transmission Date: 20210420
  Serious: Yes (Hospitalization)
  Sender: FDA-Public Use
  Company Number: FR-MYLANLABS-2021M1018956

PATIENT
  Age: 11 Year
  Sex: Male

DRUGS (1)
  1. FENTANYL. [Suspect]
     Active Substance: FENTANYL
     Indication: PRODUCT USED FOR UNKNOWN INDICATION
     Dosage: UNK
     Route: 062

REACTIONS (6)
  - Apnoea [Unknown]
  - Cerebral small vessel ischaemic disease [Unknown]
  - Toxicity to various agents [Unknown]
  - Miosis [Unknown]
  - Accidental exposure to product [Unknown]
  - Altered state of consciousness [Unknown]
